FAERS Safety Report 8128401 (Version 4)
Quarter: 2020Q2

REPORT INFORMATION
  Report Type: Spontaneous
  Country: HR (occurrence: HR)
  Receive Date: 20110909
  Receipt Date: 20200520
  Transmission Date: 20200714
  Serious: Yes (Hospitalization, Other)
  Sender: FDA-Public Use
  Company Number: HR-SANOFI-AVENTIS-2011SA056460

PATIENT
  Age: 31 Year
  Sex: Female

DRUGS (41)
  1. PIROXICAM. [Suspect]
     Active Substance: PIROXICAM
     Indication: PAIN
     Dosage: 20 MG,UNK
     Route: 065
     Dates: start: 200709
  2. DIAZEPAM. [Suspect]
     Active Substance: DIAZEPAM
     Indication: PAIN
     Dosage: 5 MG, QD
     Route: 065
     Dates: start: 200709
  3. LEVOTHYROXINE SODIUM. [Suspect]
     Active Substance: LEVOTHYROXINE SODIUM
     Dosage: 50 UG,UNK
     Route: 065
     Dates: start: 200904
  4. PARACETAMOL/TRAMADOL HYDROCHLORIDE [Suspect]
     Active Substance: ACETAMINOPHEN\TRAMADOL HYDROCHLORIDE
     Dosage: UNK UNK,UNK
     Route: 065
     Dates: start: 200805
  5. BACLOFEN. [Suspect]
     Active Substance: BACLOFEN
     Dosage: 25 MG, TID
     Route: 065
     Dates: start: 200805
  6. LEVOTHYROXINE SODIUM. [Suspect]
     Active Substance: LEVOTHYROXINE SODIUM
     Dosage: 50 UG,UNK
     Route: 065
     Dates: start: 200805
  7. GABAPENTIN. [Suspect]
     Active Substance: GABAPENTIN
     Indication: PAIN
     Dosage: UNK UNK,UNK
     Route: 065
     Dates: start: 200904
  8. GABAPENTIN. [Suspect]
     Active Substance: GABAPENTIN
     Indication: MENTAL DISORDER
  9. GINKGO BILOBA [Suspect]
     Active Substance: GINKGO
     Indication: RASH
  10. LEVOTHYROXINE SODIUM. [Suspect]
     Active Substance: LEVOTHYROXINE SODIUM
     Indication: QUADRIPARESIS
     Dosage: 50 UG,UNK, 75 UG
     Route: 065
     Dates: start: 200703
  11. RANITIDINE. [Suspect]
     Active Substance: RANITIDINE
     Indication: PRODUCT USED FOR UNKNOWN INDICATION
     Dosage: DOSE: 2X150 MG
     Route: 065
     Dates: start: 200709
  12. FENTANYL. [Suspect]
     Active Substance: FENTANYL
     Indication: PAIN
     Dosage: 100 UG,Q3D
     Route: 065
     Dates: start: 201003
  13. GINKGO BILOBA [Suspect]
     Active Substance: GINKGO
     Indication: PAIN
     Dosage: 120 MG,UNK
     Route: 065
     Dates: start: 201003
  14. LEVOTHYROXINE SODIUM. [Suspect]
     Active Substance: LEVOTHYROXINE SODIUM
     Dosage: 50 UG,UNK
     Route: 065
     Dates: start: 201003
  15. CARBAMAZEPINE. [Suspect]
     Active Substance: CARBAMAZEPINE
     Indication: PAIN
     Dosage: UNK UNK,UNK
     Route: 065
     Dates: start: 200709
  16. DIAZEPAM. [Suspect]
     Active Substance: DIAZEPAM
     Dosage: DOSE: 2 MG, 2 MG, 5 MG
     Route: 065
     Dates: start: 201003
  17. OXYCODONE [Suspect]
     Active Substance: OXYCODONE
     Indication: PAIN
     Dosage: 10 MG, TID
     Route: 065
     Dates: start: 200904
  18. PANTOPRAZOLE [Suspect]
     Active Substance: PANTOPRAZOLE
     Indication: PRODUCT USED FOR UNKNOWN INDICATION
     Dosage: 20 MG,UNK
     Route: 065
     Dates: start: 200904
  19. FEXOFENADINE HYDROCHLORIDE. [Suspect]
     Active Substance: FEXOFENADINE HYDROCHLORIDE
     Indication: PAIN
     Dosage: 180 MG,UNK
     Route: 065
     Dates: start: 201003
  20. NEUROBION FORTE [CYANOCOBALAMIN;PYRIDOXINE HYDROCHLORIDE;RIBOFLAVIN;TH [Suspect]
     Active Substance: CYANOCOBALAMIN\PYRIDOXINE\RIBOFLAVIN\THIAMINE
     Indication: ASTHENIA
  21. PREGABALIN. [Suspect]
     Active Substance: PREGABALIN
     Indication: PAIN
     Dosage: 300 MG, BID
     Route: 065
     Dates: start: 201003
  22. BACLOFEN. [Suspect]
     Active Substance: BACLOFEN
     Indication: PAIN
     Dosage: 10 MG, TID
     Route: 065
     Dates: start: 200709
  23. BACLOFEN. [Suspect]
     Active Substance: BACLOFEN
     Dosage: 25 MG, TID
     Route: 065
     Dates: start: 200904
  24. BACLOFEN. [Suspect]
     Active Substance: BACLOFEN
     Dosage: 25 MG, TID
     Route: 065
     Dates: start: 201003
  25. PARACETAMOL/TRAMADOL HYDROCHLORIDE [Suspect]
     Active Substance: ACETAMINOPHEN\TRAMADOL HYDROCHLORIDE
     Indication: PAIN
     Dosage: UNK UNK,UNK
     Route: 065
     Dates: start: 200709
  26. ALPRAZOLAM. [Suspect]
     Active Substance: ALPRAZOLAM
     Indication: PAIN
     Dosage: UNK UNK,UNK
     Route: 065
     Dates: start: 200805
  27. LEVOTHYROXINE SODIUM. [Suspect]
     Active Substance: LEVOTHYROXINE SODIUM
     Indication: PAIN
     Dosage: 50 UG,UNK
     Route: 065
  28. LEVOTHYROXINE SODIUM. [Suspect]
     Active Substance: LEVOTHYROXINE SODIUM
     Dosage: 50 UG,UNK
     Route: 065
     Dates: start: 200709
  29. PARACETAMOL/TRAMADOL HYDROCHLORIDE [Suspect]
     Active Substance: ACETAMINOPHEN\TRAMADOL HYDROCHLORIDE
     Dosage: 37.5 MG/325MG 2 TABLETS 3 TIMES PER DAY
     Route: 065
     Dates: start: 200904
  30. BUPRENORPHINE. [Suspect]
     Active Substance: BUPRENORPHINE
     Indication: PAIN
     Dosage: 70 UG,Q3D
     Route: 065
     Dates: start: 200904
  31. BUPRENORPHINE. [Suspect]
     Active Substance: BUPRENORPHINE
     Indication: BRADYPHRENIA
  32. NEUROBION FORTE [CYANOCOBALAMIN;PYRIDOXINE HYDROCHLORIDE;RIBOFLAVIN;TH [Suspect]
     Active Substance: CYANOCOBALAMIN\PYRIDOXINE\RIBOFLAVIN\THIAMINE
     Indication: PAIN
     Dosage: 2 X 1 TABLET
     Route: 065
     Dates: start: 200805
  33. IBUPROFEN. [Suspect]
     Active Substance: IBUPROFEN
     Indication: PAIN
     Dosage: 400 MG,UNK
     Route: 065
     Dates: start: 200703
  34. PARACETAMOL/TRAMADOL HYDROCHLORIDE [Suspect]
     Active Substance: ACETAMINOPHEN\TRAMADOL HYDROCHLORIDE
     Dosage: PP
     Route: 065
     Dates: start: 201003
  35. SERTRALINE [Suspect]
     Active Substance: SERTRALINE HYDROCHLORIDE
     Indication: PAIN
     Dosage: 1DF:1 TABLET APR09 50MG
     Route: 065
     Dates: start: 200805
  36. SERTRALINE [Suspect]
     Active Substance: SERTRALINE HYDROCHLORIDE
     Indication: HEADACHE
     Dosage: 50 MG, QD, FILM-COATED TABLET
     Route: 065
     Dates: start: 200904
  37. ALPRAZOLAM. [Suspect]
     Active Substance: ALPRAZOLAM
     Indication: PERSISTENT DEPRESSIVE DISORDER
  38. OXYCODONE [Suspect]
     Active Substance: OXYCODONE
     Dosage: 10 MG, TID
     Route: 065
     Dates: start: 201003
  39. ESOMEPRAZOLE. [Suspect]
     Active Substance: ESOMEPRAZOLE MAGNESIUM
     Indication: ASTHENIA
     Dosage: 20 MG, BID
     Route: 065
     Dates: start: 201003
  40. FEXOFENADINE HYDROCHLORIDE. [Suspect]
     Active Substance: FEXOFENADINE HYDROCHLORIDE
     Indication: HEADACHE
  41. TRAMADOL. [Concomitant]
     Active Substance: TRAMADOL
     Indication: PAIN
     Dosage: 37.5 MG, TID

REACTIONS (36)
  - Condition aggravated [Unknown]
  - Loss of consciousness [Unknown]
  - Gastrointestinal motility disorder [Unknown]
  - Constipation [Unknown]
  - Neurosis [Unknown]
  - Disturbance in attention [Unknown]
  - Erythema [Unknown]
  - Asthenia [Unknown]
  - Rash [Unknown]
  - Sedation [Unknown]
  - Conversion disorder [Unknown]
  - Pruritus [Unknown]
  - Vomiting [Unknown]
  - Euphoric mood [Unknown]
  - Quadriparesis [Unknown]
  - Musculoskeletal stiffness [Unknown]
  - Psychomotor skills impaired [Unknown]
  - Oedema [Unknown]
  - Diplopia [Unknown]
  - Persistent depressive disorder [Unknown]
  - Syncope [Unknown]
  - Schizophrenia [Unknown]
  - Depression [Unknown]
  - Dizziness [Unknown]
  - Ataxia [Unknown]
  - Sensory disturbance [Unknown]
  - Feeling abnormal [Unknown]
  - Pain [Unknown]
  - Ill-defined disorder [Unknown]
  - Fatigue [Unknown]
  - Headache [Unknown]
  - Confusional state [Unknown]
  - Cognitive disorder [Unknown]
  - Anxiety [Unknown]
  - Nausea [Unknown]
  - Drug ineffective [Unknown]
